FAERS Safety Report 20425406 (Version 1)
Quarter: 2022Q1

REPORT INFORMATION
  Report Type: Report from Study
  Country: US (occurrence: US)
  Receive Date: 20220204
  Receipt Date: 20220204
  Transmission Date: 20220424
  Serious: No
  Sender: FDA-Public Use
  Company Number: US-EXELIXIS-CABO-21038625

PATIENT
  Sex: Male

DRUGS (1)
  1. CABOMETYX [Suspect]
     Active Substance: CABOZANTINIB S-MALATE
     Indication: Hepatic neoplasm
     Dosage: 40 MG, QD
     Route: 048
     Dates: start: 202101

REACTIONS (6)
  - Lip pain [Unknown]
  - Lip blister [Unknown]
  - Oral pain [Unknown]
  - Haematochezia [Unknown]
  - Fatigue [Unknown]
  - Decreased appetite [Unknown]
